FAERS Safety Report 12214995 (Version 1)
Quarter: 2016Q1

REPORT INFORMATION
  Report Type: Report from Study
  Country: AU (occurrence: AU)
  Receive Date: 20160328
  Receipt Date: 20160328
  Transmission Date: 20160526
  Serious: Yes (Other)
  Sender: FDA-Public Use
  Company Number: AU-REGENERON PHARMACEUTICALS, INC.-2016-14450

PATIENT

DRUGS (1)
  1. EYLEA [Suspect]
     Active Substance: AFLIBERCEPT
     Indication: NEOVASCULAR AGE-RELATED MACULAR DEGENERATION
     Dosage: 2 MG MILLIGRAM(S), MONTHLY
     Route: 031
     Dates: start: 20150614

REACTIONS (5)
  - Intra-ocular injection [Unknown]
  - Visual impairment [Recovered/Resolved]
  - Device dislocation [Unknown]
  - Product use issue [Unknown]
  - Intra-ocular injection [Unknown]

NARRATIVE: CASE EVENT DATE: 201506
